FAERS Safety Report 8587573-2 (Version None)
Quarter: 2012Q3

REPORT INFORMATION
  Report Type: 
  Country: None (occurrence: None)
  Receive Date: 20120810
  Receipt Date: 20120727
  Transmission Date: 20120928
  Serious: No
  Sender: FDA-Public Use
  Company Number: US-009507513-1207USA011987

PATIENT

DRUGS (5)
  1. WELCHOL [Suspect]
     Dosage: 625 MG, BID
     Route: 048
  2. CELEBREX [Suspect]
  3. NASONEX [Suspect]
     Dosage: UNK
     Route: 045
  4. TRICOR [Suspect]
  5. VIOXX [Suspect]

REACTIONS (1)
  - DRUG HYPERSENSITIVITY [None]
